FAERS Safety Report 14941927 (Version 1)
Quarter: 2018Q2

REPORT INFORMATION
  Report Type: Spontaneous
  Country: FR (occurrence: FR)
  Receive Date: 20180527
  Receipt Date: 20180527
  Transmission Date: 20180711
  Serious: Yes (Other)
  Sender: FDA-Public Use
  Company Number: FR-MERCK KGAA-2048494

PATIENT
  Age: 61 Year
  Sex: Female

DRUGS (2)
  1. NOVOTHYROX [Suspect]
     Active Substance: LEVOTHYROXINE SODIUM
     Indication: AUTOIMMUNE THYROIDITIS
     Dates: end: 201711
  2. NOVOTHYROX [Suspect]
     Active Substance: LEVOTHYROXINE SODIUM
     Indication: HYPOTHYROIDISM
     Dates: end: 201711

REACTIONS (23)
  - Amnesia [Recovering/Resolving]
  - Asthenia [Recovering/Resolving]
  - Headache [Recovering/Resolving]
  - Arrhythmia [Recovered/Resolved]
  - Disturbance in attention [Recovering/Resolving]
  - Personal relationship issue [Recovering/Resolving]
  - Blood triglycerides increased [None]
  - Low density lipoprotein increased [Not Recovered/Not Resolved]
  - Blood cholesterol increased [Not Recovered/Not Resolved]
  - Dyspepsia [Recovering/Resolving]
  - Head discomfort [Recovering/Resolving]
  - Fatigue [Recovering/Resolving]
  - Loss of personal independence in daily activities [Recovering/Resolving]
  - Oral pain [Recovering/Resolving]
  - Feeling abnormal [Recovering/Resolving]
  - Oesophageal pain [Recovering/Resolving]
  - Asocial behaviour [Recovering/Resolving]
  - Stomatitis [Recovering/Resolving]
  - Product substitution issue [None]
  - Glossitis [Recovering/Resolving]
  - Palpitations [None]
  - Cheilitis [Recovering/Resolving]
  - Drug titration error [None]

NARRATIVE: CASE EVENT DATE: 20170406
